FAERS Safety Report 12566641 (Version 2)
Quarter: 2016Q3

REPORT INFORMATION
  Report Type: Report from Study
  Country: AR (occurrence: AR)
  Receive Date: 20160718
  Receipt Date: 20160810
  Transmission Date: 20161109
  Serious: Yes (Other)
  Sender: FDA-Public Use
  Company Number: AR-INCYTE CORPORATION-2016IN000802

PATIENT
  Age: 71 Year
  Sex: Male

DRUGS (2)
  1. JAKAFI [Suspect]
     Active Substance: RUXOLITINIB
     Indication: MYELOFIBROSIS
     Dosage: 10 MG, QD
     Route: 065
     Dates: start: 20150304
  2. JAKAFI [Suspect]
     Active Substance: RUXOLITINIB
     Indication: LEUKAEMIA

REACTIONS (6)
  - Influenza [Not Recovered/Not Resolved]
  - Bone marrow failure [Recovered/Resolved]
  - Discomfort [Recovered/Resolved]
  - Product use issue [Unknown]
  - Pain [Unknown]
  - Fatigue [Recovered/Resolved]

NARRATIVE: CASE EVENT DATE: 20160201
